FAERS Safety Report 7586172-9 (Version None)
Quarter: 2011Q2

REPORT INFORMATION
  Report Type: 
  Country: None (occurrence: None)
  Receive Date: 20110629
  Receipt Date: 20110629
  Transmission Date: 20111010
  Serious: Yes (Hospitalization)
  Sender: FDA-Public Use
  Company Number: None

PATIENT
  Age: 77 Year
  Sex: Female
  Weight: 49.8957 kg

DRUGS (6)
  1. NATEGLINIDE [Concomitant]
  2. CIPROFLOXACIN [Concomitant]
  3. DOCETAXEL [Suspect]
     Indication: LUNG NEOPLASM MALIGNANT
     Dosage: 35MG/M2 (IV)
     Route: 042
     Dates: start: 20110223, end: 20110601
  4. AVASTIN [Suspect]
     Indication: LUNG NEOPLASM MALIGNANT
     Dosage: 10MG/KG (IV)
     Route: 042
     Dates: start: 20110223, end: 20110601
  5. BENAZEPRIL HYDROCHLORIDE [Concomitant]
  6. VYTORIN [Concomitant]

REACTIONS (4)
  - FATIGUE [None]
  - STENOTROPHOMONAS TEST POSITIVE [None]
  - DEHYDRATION [None]
  - IMMOBILE [None]
